FAERS Safety Report 24004388 (Version 1)
Quarter: 2024Q2

REPORT INFORMATION
  Report Type: Spontaneous
  Country: GB (occurrence: GB)
  Receive Date: 20240624
  Receipt Date: 20240624
  Transmission Date: 20240716
  Serious: Yes (Other)
  Sender: FDA-Public Use
  Company Number: None

PATIENT
  Age: 32 Year
  Sex: Male
  Weight: 88 kg

DRUGS (3)
  1. FLUTICASONE [Suspect]
     Active Substance: FLUTICASONE
     Indication: Seasonal allergy
     Dosage: 100MCG BD
     Route: 065
     Dates: start: 20240430
  2. FEXOFENADINE [Concomitant]
     Active Substance: FEXOFENADINE HYDROCHLORIDE
     Indication: Seasonal allergy
     Dates: start: 20220430
  3. CITALOPRAM [Concomitant]
     Active Substance: CITALOPRAM\CITALOPRAM HYDROBROMIDE
     Indication: Depressed mood
     Dates: start: 20220401

REACTIONS (1)
  - Restless legs syndrome [Not Recovered/Not Resolved]

NARRATIVE: CASE EVENT DATE: 20240612
